FAERS Safety Report 5492583-8 (Version None)
Quarter: 2007Q4

REPORT INFORMATION
  Report Type: 
  Country: None (occurrence: None)
  Receive Date: 20071022
  Receipt Date: 20071010
  Transmission Date: 20080405
  Serious: Yes (Other)
  Sender: FDA-Public Use
  Company Number: FR-PFIZER INC-2007076897

PATIENT
  Sex: Female
  Weight: 56 kg

DRUGS (1)
  1. LYRICA [Suspect]
     Indication: NEURALGIA
     Route: 048
     Dates: start: 20070603, end: 20070702

REACTIONS (11)
  - ARTHRALGIA [None]
  - BACK PAIN [None]
  - DIPLOPIA [None]
  - DYSPEPSIA [None]
  - HOT FLUSH [None]
  - NAUSEA [None]
  - PAIN [None]
  - SINUS DISORDER [None]
  - TACHYCARDIA [None]
  - VERTIGO [None]
  - VISION BLURRED [None]
